FAERS Safety Report 4284683-5 (Version None)
Quarter: 2004Q1

REPORT INFORMATION
  Report Type: 
  Country: None (occurrence: None)
  Receive Date: 20040130
  Receipt Date: 20040122
  Transmission Date: 20041129
  Serious: Yes (Hospitalization)
  Sender: FDA-Public Use
  Company Number: EMADSS2003004247

PATIENT
  Age: 16 Year
  Sex: Female
  Weight: 62 kg

DRUGS (1)
  1. CILEST (NORGESTIMATE/ETHINYL ESTRADIOL) TABLETS [Suspect]
     Indication: CONTRACEPTION
     Dosage: 1 DOSE (S), 1 IN 1 DAY, ORAL
     Route: 048
     Dates: start: 20010101

REACTIONS (2)
  - DRUG TOXICITY [None]
  - HEPATIC FAILURE [None]
